FAERS Safety Report 17772458 (Version 2)
Quarter: 2020Q3

REPORT INFORMATION
  Report Type: Report from Study
  Country: GB (occurrence: GB)
  Receive Date: 20200512
  Receipt Date: 20200905
  Transmission Date: 20201102
  Serious: Yes (Other)
  Sender: FDA-Public Use
  Company Number: NVSC2020GB128234

PATIENT
  Sex: Female

DRUGS (1)
  1. ERELZI [Suspect]
     Active Substance: ETANERCEPT-SZZS
     Indication: RHEUMATOID ARTHRITIS
     Dosage: 50 MG, QW
     Route: 065
     Dates: start: 20190806

REACTIONS (6)
  - Arthralgia [Unknown]
  - Mobility decreased [Unknown]
  - Seizure [Unknown]
  - Insomnia [Unknown]
  - Osteoporosis [Unknown]
  - Pain [Unknown]
